FAERS Safety Report 8893780 (Version 1)
Quarter: 2012Q4

REPORT INFORMATION
  Report Type: 
  Country: US (occurrence: US)
  Receive Date: 20121107
  Receipt Date: 20121107
  Transmission Date: 20130627
  Serious: No
  Sender: FDA-Public Use
  Company Number: US-AMGEN-USASP2012040477

PATIENT
  Age: 42 Year
  Sex: Female
  Weight: 142.86 kg

DRUGS (13)
  1. ENBREL [Suspect]
     Indication: RHEUMATOID ARTHRITIS
     Dosage: 50 mg, qwk
     Route: 058
     Dates: start: 20120405, end: 20121004
  2. VOLTAREN-XR [Concomitant]
     Dosage: 100 mg, UNK
  3. ORTHO-TRI-CYCLEN LO [Concomitant]
     Dosage: UNK
  4. PROCARDIA                          /00340701/ [Concomitant]
     Dosage: 30 mg, UNK
  5. PROVENTIL                          /00139501/ [Concomitant]
     Dosage: 90 mug, UNK
  6. ALLEGRA [Concomitant]
     Dosage: 60 mg, UNK
  7. LISINOPRIL [Concomitant]
     Dosage: 10 mg, UNK
  8. METHOTREXATE [Concomitant]
     Dosage: 50 mg/2ml, UNK
  9. FOLIC ACID [Concomitant]
     Dosage: UNK
  10. MULTI-VIT [Concomitant]
     Dosage: UNK
  11. MOTRIN IB [Concomitant]
     Dosage: 200 mg, UNK
  12. ALFALFA                            /01255601/ [Concomitant]
     Dosage: 250 mg, UNK
  13. CYMBALTA [Concomitant]
     Dosage: UNK

REACTIONS (3)
  - Nausea [Recovered/Resolved]
  - Migraine [Recovered/Resolved]
  - Drug ineffective [Recovered/Resolved]
